FAERS Safety Report 4609834-1 (Version None)
Quarter: 2005Q1

REPORT INFORMATION
  Report Type: 
  Country: None (occurrence: None)
  Receive Date: 20050316
  Receipt Date: 20050308
  Transmission Date: 20050727
  Serious: Yes (Hospitalization)
  Sender: FDA-Public Use
  Company Number: 200512128GDDC

PATIENT
  Age: 70 Year
  Sex: Male

DRUGS (3)
  1. GAVISCON [Suspect]
     Indication: HIATUS HERNIA
     Dosage: DOSE: UNK
     Route: 048
     Dates: start: 19750101
  2. RANITIDINE HYDROCHLORIDE [Concomitant]
     Dosage: DOSE: UNK
  3. METFORMIN HCL [Concomitant]
     Dosage: DOSE: UNK

REACTIONS (4)
  - DIARRHOEA [None]
  - DIVERTICULUM [None]
  - HAEMORRHOIDAL HAEMORRHAGE [None]
  - RECTAL HAEMORRHAGE [None]
